FAERS Safety Report 17305405 (Version 1)
Quarter: 2020Q1

REPORT INFORMATION
  Report Type: Spontaneous
  Country: US (occurrence: US)
  Receive Date: 20200123
  Receipt Date: 20200123
  Transmission Date: 20200409
  Serious: No
  Sender: FDA-Public Use
  Company Number: US-VERTEX PHARMACEUTICALS-2020-000772

PATIENT
  Sex: Male
  Weight: 71 kg

DRUGS (8)
  1. TRIKAFTA [Suspect]
     Active Substance: ELEXACAFTOR\IVACAFTOR\TEZACAFTOR
     Indication: CYSTIC FIBROSIS
     Dosage: 2 ORANGE TABLETS EVERY MORNING AND 1 BLUE TABLET EVERY EVENING
     Route: 048
     Dates: start: 20191222
  2. DICLOFENAC POTASSIUM. [Concomitant]
     Active Substance: DICLOFENAC POTASSIUM
     Dosage: 50 MG TABLET
     Route: 048
  3. MUCINEX [Concomitant]
     Active Substance: GUAIFENESIN
     Dosage: 100 MG GRAN PACK
     Route: 048
  4. LAMOTRIGINE. [Concomitant]
     Active Substance: LAMOTRIGINE
     Dosage: BLUE TABLET
     Route: 048
  5. RANITIDINE HCL [Concomitant]
     Active Substance: RANITIDINE HYDROCHLORIDE
     Dosage: 150 MG CAPSULE
     Route: 048
  6. DULERA [Concomitant]
     Active Substance: FORMOTEROL FUMARATE DIHYDRATE\MOMETASONE FUROATE
     Dosage: 100-5 MCG
     Route: 048
  7. QUETIAPINE FUMARATE. [Concomitant]
     Active Substance: QUETIAPINE FUMARATE
     Dosage: 100 MG TABLET
     Route: 048
  8. CLONAZEPAM. [Concomitant]
     Active Substance: CLONAZEPAM
     Dosage: 0.125 MG TABLET
     Route: 048

REACTIONS (1)
  - Malaise [Unknown]
